FAERS Safety Report 4598239-8 (Version None)
Quarter: 2005Q1

REPORT INFORMATION
  Report Type: 
  Country: None (occurrence: None)
  Receive Date: 20050302
  Receipt Date: 20041110
  Transmission Date: 20050727
  Serious: Yes (Hospitalization, Other)
  Sender: FDA-Public Use
  Company Number: 702380

PATIENT
  Age: 75 Year
  Sex: Female
  Weight: 59.8748 kg

DRUGS (1)
  1. AMEVIVE [Suspect]
     Indication: PSORIASIS
     Dates: start: 20040501, end: 20040801

REACTIONS (3)
  - CHEST WALL PAIN [None]
  - OSTEOLYSIS [None]
  - RENAL CELL CARCINOMA STAGE UNSPECIFIED [None]
